FAERS Safety Report 17010406 (Version 1)
Quarter: 2019Q4

REPORT INFORMATION
  Report Type: Spontaneous
  Country: CZ (occurrence: CZ)
  Receive Date: 20191108
  Receipt Date: 20191108
  Transmission Date: 20200122
  Serious: Yes (Other)
  Sender: FDA-Public Use
  Company Number: CZ-BRACCO-2019CZ05615

PATIENT
  Age: 31 Year

DRUGS (7)
  1. MULTIHANCE [Suspect]
     Active Substance: GADOBENATE DIMEGLUMINE
     Indication: MAGNETIC RESONANCE IMAGING
     Dosage: TOTAL VOLUME: 234ML
  2. OMNISCAN [Suspect]
     Active Substance: GADODIAMIDE
     Indication: MAGNETIC RESONANCE IMAGING
     Dosage: TOTAL VOLUME: 70ML
  3. GADOLINIUM [Suspect]
     Active Substance: GADOLINIUM
     Indication: MAGNETIC RESONANCE IMAGING
     Dosage: TOTAL VOLUME: 20ML
  4. PROHANCE [Suspect]
     Active Substance: GADOTERIDOL
     Indication: MAGNETIC RESONANCE IMAGING
     Dosage: TOTAL VOLUME: 59ML
  5. MAGNEVIST [Suspect]
     Active Substance: GADOPENTETATE DIMEGLUMINE
     Indication: MAGNETIC RESONANCE IMAGING
     Dosage: TOTAL VOLUME: 60ML
  6. DOTAREM [Suspect]
     Active Substance: GADOTERATE MEGLUMINE
     Indication: MAGNETIC RESONANCE IMAGING
     Dosage: 14 ML, SINGLE
  7. GADOVIST [Suspect]
     Active Substance: GADOBUTROL
     Indication: MAGNETIC RESONANCE IMAGING
     Dosage: TOTAL VOLUME: 52.5ML

REACTIONS (1)
  - Hyperintensity in brain deep nuclei [Unknown]
